FAERS Safety Report 13273546 (Version 1)
Quarter: 2017Q1

REPORT INFORMATION
  Report Type: Spontaneous
  Country: JP (occurrence: JP)
  Receive Date: 20170227
  Receipt Date: 20170227
  Transmission Date: 20170428
  Serious: Yes (Death)
  Sender: FDA-Public Use
  Company Number: JP-ACTELION-A-CH2017-150253

PATIENT

DRUGS (1)
  1. UPTRAVI [Suspect]
     Active Substance: SELEXIPAG
     Indication: ANOMALOUS PULMONARY VENOUS CONNECTION
     Dosage: UNK, UNK
     Route: 048
     Dates: start: 20161122

REACTIONS (1)
  - Death [Fatal]
